FAERS Safety Report 6267253-9 (Version None)
Quarter: 2009Q3

REPORT INFORMATION
  Report Type: 
  Country: None (occurrence: None)
  Receive Date: 20090714
  Receipt Date: 20090702
  Transmission Date: 20100115
  Serious: Yes (Hospitalization)
  Sender: FDA-Public Use
  Company Number: GB-PFIZER INC-2009227346

PATIENT
  Age: 55 Year

DRUGS (11)
  1. FESOTERODINE [Suspect]
     Indication: HYPERTONIC BLADDER
     Dosage: 4 MG, 1X/DAY
     Route: 048
     Dates: start: 20090605
  2. ACETYLSALICYLIC ACID [Concomitant]
     Dosage: 75 MG, 1X/DAY
     Route: 048
     Dates: start: 20080206
  3. SYMBICORT [Concomitant]
     Dosage: UNK
     Route: 055
     Dates: start: 20070511
  4. MOMETASONE [Concomitant]
     Dosage: UNK
     Route: 045
     Dates: start: 20071112
  5. TERBUTALINE [Concomitant]
     Dosage: UNK
     Dates: start: 20071210
  6. GAVISCON [Concomitant]
     Dosage: UNK
     Route: 048
     Dates: start: 20071210
  7. PROPAFENONE [Concomitant]
     Dosage: UNK
     Route: 048
     Dates: start: 20080630
  8. RANITIDINE [Concomitant]
     Dosage: UNK
     Route: 048
     Dates: start: 20080727
  9. ACETAMINOPHEN W/ CODEINE [Concomitant]
     Dosage: UNK
     Route: 048
     Dates: start: 20080716
  10. IBUGEL [Concomitant]
     Dosage: UNK
     Route: 061
     Dates: start: 20080711
  11. CITALOPRAM [Concomitant]
     Dosage: UNK
     Route: 048
     Dates: start: 20081112

REACTIONS (1)
  - OEDEMA PERIPHERAL [None]
